FAERS Safety Report 8611453-7 (Version None)
Quarter: 2012Q3

REPORT INFORMATION
  Report Type: 
  Country: None (occurrence: None)
  Receive Date: 20120809
  Receipt Date: 20120730
  Transmission Date: 20120928
  Serious: Yes (Hospitalization)
  Sender: FDA-Public Use
  Company Number: DSA_58823_2012

PATIENT
  Age: 63 Year
  Sex: Female

DRUGS (8)
  1. ASPIRIN [Concomitant]
  2. METOPROLOL TARTRATE [Concomitant]
  3. ACYCLOVIR [Suspect]
     Indication: HERPES ZOSTER
     Dosage: (400 MG QID ORAL)
     Route: 048
  4. ALFACALCIDOL [Concomitant]
  5. CALCIUM CARBONATE [Concomitant]
  6. ACYCLOVIR [Suspect]
     Indication: HERPES ZOSTER
     Dosage: (5 % 5X/DAY TOPICAL)
     Route: 061
  7. EPOGEN [Concomitant]
  8. DILTIAZEM HCL [Concomitant]

REACTIONS (4)
  - TOXIC ENCEPHALOPATHY [None]
  - HAEMODIALYSIS [None]
  - BLOOD PRESSURE INCREASED [None]
  - HAEMOGLOBIN DECREASED [None]
